FAERS Safety Report 18544929 (Version 1)
Quarter: 2020Q4

REPORT INFORMATION
  Report Type: Spontaneous
  Country: US (occurrence: US)
  Receive Date: 20201125
  Receipt Date: 20201125
  Transmission Date: 20210114
  Serious: Yes (Other)
  Sender: FDA-Public Use
  Company Number: None

PATIENT
  Age: 73 Year
  Sex: Male
  Weight: 126.9 kg

DRUGS (19)
  1. TYLENOL WITH CODEINE #3 300-30MG ORAL [Concomitant]
  2. VITAMIN C 100MG ORAL [Concomitant]
  3. LISINOPRIL 20MG ORAL [Concomitant]
  4. XARELTO 20MG ORAL [Concomitant]
  5. TOPROL XL 25MG ORAL [Concomitant]
  6. PROCHLORPERAZINE MALEATE 10MG ORAL [Concomitant]
  7. TAXOTERE IV [Concomitant]
  8. ZOMETA 4MG/ 5ML IV [Concomitant]
  9. BICALUTAMIDE 50MG ORAL [Concomitant]
  10. NORVASC 10MG ORAL [Concomitant]
  11. PREDNISONE 5MG ORAL [Concomitant]
  12. ONDANSETRON HCL 40MG/ 20MG INJECTABLE [Concomitant]
  13. DEXAMETHASONE INJECTABLE [Concomitant]
  14. NEULASTA 6MG/ 0.6ML SUBCUTANEOUS [Concomitant]
  15. ABIRATERONE ACETATE. [Suspect]
     Active Substance: ABIRATERONE ACETATE
     Indication: PROSTATE CANCER
     Route: 048
     Dates: start: 20201103
  16. ZOLOFT 50MG ORAL [Concomitant]
  17. SYNTHROID 50MCG ORAL [Concomitant]
  18. ALFUZOSIN HCL ER 10MG ORAL [Concomitant]
  19. ZINC GLUCONATE 100MG ORAL [Concomitant]

REACTIONS (1)
  - Diarrhoea [None]

NARRATIVE: CASE EVENT DATE: 20201125
